FAERS Safety Report 4768811-0 (Version None)
Quarter: 2005Q3

REPORT INFORMATION
  Report Type: 
  Country: None (occurrence: None)
  Receive Date: 20050914
  Receipt Date: 20050908
  Transmission Date: 20060218
  Serious: Yes (Life-Threatening, Hospitalization, Other)
  Sender: FDA-Public Use
  Company Number: HQWYE352810JUN05

PATIENT
  Age: 69 Year
  Sex: Male

DRUGS (5)
  1. RAPAMUNE [Suspect]
     Indication: PROPHYLAXIS AGAINST TRANSPLANT REJECTION
     Dosage: 2 MG 1X PER 1 DAY, ORAL
     Route: 048
     Dates: start: 20030107, end: 20050606
  2. PREDNISONE [Concomitant]
  3. EFFEXOR XR [Concomitant]
  4. CARDURA [Concomitant]
  5. COREG [Concomitant]

REACTIONS (7)
  - DIALYSIS [None]
  - DISEASE PROGRESSION [None]
  - GLIOBLASTOMA [None]
  - GLIOBLASTOMA MULTIFORME [None]
  - KIDNEY TRANSPLANT REJECTION [None]
  - PALPITATIONS [None]
  - TRANSPLANT REJECTION [None]
